FAERS Safety Report 9611997 (Version 2)
Quarter: 2014Q1

REPORT INFORMATION
  Report Type: Report from Study
  Country: ZA (occurrence: ZA)
  Receive Date: 20131010
  Receipt Date: 20140113
  Transmission Date: 20141002
  Serious: Yes (Other)
  Sender: FDA-Public Use
  Company Number: ZA-ROCHE-1285159

PATIENT
  Age: 83 Year
  Sex: Male

DRUGS (5)
  1. RANIBIZUMAB [Suspect]
     Indication: AGE-RELATED MACULAR DEGENERATION
     Route: 050
     Dates: start: 20120320
  2. RANIBIZUMAB [Suspect]
     Route: 050
     Dates: start: 20120529
  3. RANIBIZUMAB [Suspect]
     Route: 050
     Dates: start: 20120502
  4. RANIBIZUMAB [Suspect]
     Route: 050
     Dates: start: 201212
  5. RANIBIZUMAB [Suspect]
     Route: 050

REACTIONS (6)
  - Eye haemorrhage [Unknown]
  - Retinal disorder [Unknown]
  - Subretinal fluid [Unknown]
  - Retinal oedema [Unknown]
  - Blindness unilateral [Unknown]
  - Inappropriate schedule of drug administration [Unknown]
